FAERS Safety Report 15703136 (Version 1)
Quarter: 2018Q4

REPORT INFORMATION
  Report Type: Spontaneous
  Country: US (occurrence: US)
  Receive Date: 20181208
  Receipt Date: 20181208
  Transmission Date: 20190205
  Serious: Yes (Disabling)
  Sender: FDA-Public Use
  Company Number: None

PATIENT
  Age: 69 Year
  Sex: Female
  Weight: 56.25 kg

DRUGS (7)
  1. CALCIUM 600MG W/D [Concomitant]
  2. VIACTIV 500 W/D [Concomitant]
  3. B-12 500MCG [Concomitant]
  4. TECFIDERA [Suspect]
     Active Substance: DIMETHYL FUMARATE
     Indication: MULTIPLE SCLEROSIS
     Dosage: ?          QUANTITY:60 TABLET(S);?
     Route: 048
     Dates: start: 20170222, end: 20170523
  5. BACLOFEN 10MG 2XPER DAY [Concomitant]
  6. RALOXIFENE 60MG [Concomitant]
     Active Substance: RALOXIFENE
  7. D-3 2000 IU 2XPER DAY [Concomitant]

REACTIONS (2)
  - Herpes zoster [None]
  - Squamous cell carcinoma of skin [None]

NARRATIVE: CASE EVENT DATE: 20170415
